FAERS Safety Report 9462256 (Version 2)
Quarter: 2013Q3

REPORT INFORMATION
  Report Type: Spontaneous
  Country: US (occurrence: US)
  Receive Date: 20130816
  Receipt Date: 20130906
  Transmission Date: 20140515
  Serious: Yes (Other)
  Sender: FDA-Public Use
  Company Number: US-GLAXOSMITHKLINE-A1037738A

PATIENT
  Age: 60 Year
  Sex: Female
  Weight: 67.3 kg

DRUGS (5)
  1. WELLBUTRIN [Suspect]
     Indication: DEPRESSION
     Dosage: 150MG PER DAY
     Dates: start: 2011, end: 201305
  2. ZOLOFT [Suspect]
     Indication: DEPRESSION
     Dosage: 50MG PER DAY
     Route: 065
     Dates: start: 2011, end: 201305
  3. BABY ASPIRIN [Concomitant]
  4. PRAVASTATIN [Concomitant]
  5. VENLAFAXINE [Concomitant]

REACTIONS (8)
  - Myocardial infarction [Unknown]
  - Loss of consciousness [Unknown]
  - Dizziness [Unknown]
  - Weight decreased [Unknown]
  - Chest pain [Unknown]
  - Stress [Unknown]
  - Depression [Unknown]
  - Drug ineffective [Unknown]
